FAERS Safety Report 18966077 (Version 3)
Quarter: 2022Q3

REPORT INFORMATION
  Report Type: Report from Study
  Country: US (occurrence: US)
  Receive Date: 20210303
  Receipt Date: 20220912
  Transmission Date: 20221027
  Serious: Yes (Congenital Anomaly)
  Sender: FDA-Public Use
  Company Number: US-TAKEDA-2021TUS010507

PATIENT
  Age: 0 Year
  Sex: Male

DRUGS (12)
  1. VEDOLIZUMAB [Suspect]
     Active Substance: VEDOLIZUMAB
     Indication: Colitis ulcerative
     Dosage: 300 MILLIGRAM
     Route: 063
     Dates: start: 20180515, end: 20190315
  2. MERCAPTOPURINE [Concomitant]
     Active Substance: MERCAPTOPURINE
     Indication: Colitis ulcerative
     Dosage: UNK UNK, QD
     Route: 048
     Dates: start: 20180829, end: 20181002
  3. BACLOFEN [Concomitant]
     Active Substance: BACLOFEN
     Indication: Muscle disorder
     Dosage: UNK UNK, QD
     Route: 048
     Dates: start: 20180829, end: 20181002
  4. BENADRYL [Concomitant]
     Active Substance: DIPHENHYDRAMINE HYDROCHLORIDE
     Indication: Multiple allergies
     Dosage: UNK
     Route: 048
     Dates: start: 20180829, end: 20181030
  5. BENADRYL [Concomitant]
     Active Substance: DIPHENHYDRAMINE HYDROCHLORIDE
     Indication: Sinusitis
     Dosage: UNK, 2/WEEK
     Route: 048
     Dates: start: 20190102, end: 20190527
  6. CAFFEINE [Concomitant]
     Active Substance: CAFFEINE
     Dosage: UNK UNK, 2/MONTH
     Route: 048
     Dates: start: 20180829, end: 20181230
  7. CAFFEINE [Concomitant]
     Active Substance: CAFFEINE
     Dosage: UNK
     Route: 048
     Dates: start: 20190102, end: 20190527
  8. CALMOSEPTINE [Concomitant]
     Active Substance: MENTHOL\ZINC OXIDE
     Indication: Hidradenitis
     Dosage: UNK
     Route: 061
     Dates: start: 20180829, end: 20190527
  9. DIETARY SUPPLEMENT [Concomitant]
     Active Substance: DIETARY SUPPLEMENT
     Dosage: UNK UNK, QD
     Route: 048
     Dates: start: 20180801, end: 20190527
  10. GABAPENTIN [Concomitant]
     Active Substance: GABAPENTIN
     Indication: Muscular weakness
     Dosage: UNK UNK, QD
     Route: 048
     Dates: start: 20180829, end: 20181002
  11. VITAMINS [Concomitant]
     Active Substance: VITAMINS
     Dosage: UNK UNK, QD
     Route: 048
     Dates: start: 20180801, end: 20190527
  12. TYLENOL [Concomitant]
     Active Substance: ACETAMINOPHEN
     Indication: Myalgia
     Dosage: UNK
     Route: 048
     Dates: start: 20180829, end: 20190215

REACTIONS (3)
  - Haemangioma of skin [Unknown]
  - Strabismus [Unknown]
  - Foetal exposure during pregnancy [Unknown]

NARRATIVE: CASE EVENT DATE: 20190527
